FAERS Safety Report 7451977-1 (Version None)
Quarter: 2011Q2

REPORT INFORMATION
  Report Type: 
  Country: None (occurrence: None)
  Receive Date: 20110502
  Receipt Date: 20110420
  Transmission Date: 20111010
  Serious: Yes (Hospitalization)
  Sender: FDA-Public Use
  Company Number: IT-BRISTOL-MYERS SQUIBB COMPANY-15689086

PATIENT
  Sex: Male

DRUGS (1)
  1. ABATACEPT [Suspect]
     Dosage: LAST INFUSION ON FEB2011.

REACTIONS (3)
  - LYMPHADENOPATHY [None]
  - DRUG INEFFECTIVE [None]
  - PYREXIA [None]
